FAERS Safety Report 23624720 (Version 3)
Quarter: 2024Q4

REPORT INFORMATION
  Report Type: Report from Study
  Country: US (occurrence: US)
  Receive Date: 20240313
  Receipt Date: 20241223
  Transmission Date: 20250114
  Serious: No
  Sender: ACADIA PHARMACEUTICALS
  Company Number: US-ACADIA PHARMACEUTICALS INC.-ACA-2024-PIM-000833

PATIENT
  Age: 82 Year
  Sex: Male

DRUGS (20)
  1. NUPLAZID [Suspect]
     Active Substance: PIMAVANSERIN TARTRATE
     Indication: Parkinson^s disease
     Dosage: 34 MILLIGRAM, QD
     Route: 048
     Dates: start: 20240208, end: 20240210
  2. NUPLAZID [Suspect]
     Active Substance: PIMAVANSERIN TARTRATE
     Indication: Mental disorder
  3. BUSPIRONE [Concomitant]
     Active Substance: BUSPIRONE HYDROCHLORIDE
  4. CYMBALTA [Concomitant]
     Active Substance: DULOXETINE HYDROCHLORIDE
  5. CLONIDINE [Concomitant]
     Active Substance: CLONIDINE
  6. CARBIDOPA [Concomitant]
     Active Substance: CARBIDOPA
  7. FINASTERIDE [Concomitant]
     Active Substance: FINASTERIDE
  8. RIVASTIGMINE [Concomitant]
     Active Substance: RIVASTIGMINE
  9. ESOMEPRAZOLE [Concomitant]
     Active Substance: ESOMEPRAZOLE
  10. CARBIDOPA LEVODOPA [Concomitant]
     Active Substance: CARBIDOPA\LEVODOPA
  11. ADVAIR HFA [Concomitant]
     Active Substance: FLUTICASONE PROPIONATE\SALMETEROL XINAFOATE
  12. DULOXETINE [Concomitant]
     Active Substance: DULOXETINE
  13. LATANOPROST [Concomitant]
     Active Substance: LATANOPROST
  14. SOLIFENACIN [Concomitant]
     Active Substance: SOLIFENACIN
  15. MEMANTINE [Concomitant]
     Active Substance: MEMANTINE
  16. IRON [Concomitant]
     Active Substance: IRON
  17. MIRTAZAPINE [Concomitant]
     Active Substance: MIRTAZAPINE
  18. LEVOBUNOLOL [Concomitant]
     Active Substance: LEVOBUNOLOL
  19. COLACE [Concomitant]
     Active Substance: DOCUSATE SODIUM
  20. MELATONIN [Concomitant]
     Active Substance: MELATONIN

REACTIONS (1)
  - Diarrhoea [Recovered/Resolved]

NARRATIVE: CASE EVENT DATE: 20240208
